FAERS Safety Report 23679030 (Version 1)
Quarter: 2024Q1

REPORT INFORMATION
  Report Type: Spontaneous
  Country: US (occurrence: US)
  Receive Date: 20240327
  Receipt Date: 20240327
  Transmission Date: 20240410
  Serious: Yes (Hospitalization, Other)
  Sender: FDA-Public Use
  Company Number: US-002147023-NVSC2024US060549

PATIENT
  Sex: Female

DRUGS (2)
  1. TAFINLAR [Suspect]
     Active Substance: DABRAFENIB MESYLATE
     Indication: Lung neoplasm malignant
     Dosage: 100 MG, Q12H
     Route: 048
     Dates: start: 201812
  2. LENVIMA [Concomitant]
     Active Substance: LENVATINIB
     Indication: Product used for unknown indication
     Dosage: UNK, QD (DAILY DOSE)
     Route: 065

REACTIONS (4)
  - Chest injury [Unknown]
  - Fall [Unknown]
  - Groin abscess [Recovering/Resolving]
  - Erythema [Unknown]
